FAERS Safety Report 10080885 (Version 2)
Quarter: 2014Q2

REPORT INFORMATION
  Report Type: Report from Study
  Country: US (occurrence: US)
  Receive Date: 20140416
  Receipt Date: 20140509
  Transmission Date: 20141212
  Serious: Yes (Hospitalization)
  Sender: FDA-Public Use
  Company Number: PHEH2014US007356

PATIENT
  Sex: 0

DRUGS (3)
  1. AFINITOR [Suspect]
     Indication: MALIGNANT NEOPLASM OF THORAX
     Dosage: 10 MG, QD
     Route: 048
  2. AFINITOR [Suspect]
     Indication: OFF LABEL USE
  3. CAPRELSA [Suspect]

REACTIONS (3)
  - Arrhythmia [Unknown]
  - Neoplasm [Unknown]
  - Drug ineffective [Unknown]
